FAERS Safety Report 7724143-X (Version None)
Quarter: 2011Q3

REPORT INFORMATION
  Report Type: 
  Country: None (occurrence: None)
  Receive Date: 20110901
  Receipt Date: 20110822
  Transmission Date: 20111222
  Serious: Yes (Death, Hospitalization)
  Sender: FDA-Public Use
  Company Number: JP-ROCHE-638953

PATIENT
  Sex: Female

DRUGS (17)
  1. LOXOPROFEN [Concomitant]
     Dosage: SINGLE USE
     Route: 048
     Dates: start: 20090512
  2. LOXOPROFEN SODIUM [Concomitant]
     Dosage: TAKEN AS NEEDED;60MG A DAY
     Route: 048
  3. DECADRON [Concomitant]
     Dosage: DOSAGE IS UNCERTAIN
     Dates: start: 20090512, end: 20090512
  4. TAXOTERE [Suspect]
     Indication: BREAST CANCER METASTATIC
     Route: 041
     Dates: start: 20090512, end: 20090512
  5. TAXOTERE [Suspect]
     Dosage: DOSAGE IS UNCERTAIN AND STOP DATE ON AN UNSPECIFIED DATE IN 2009
     Route: 041
     Dates: start: 20090722
  6. MUCOSTA [Concomitant]
     Dosage: SINGLE USE
     Route: 048
     Dates: start: 20090512
  7. FAMOTIDINE [Concomitant]
     Dosage: INJECTABLE (NOT OTHERWISE SPECIFIED) AND DOSAGE IS UNCERTAIN
     Dates: start: 20090512, end: 20090512
  8. BISOPROLOL FUMARATE [Concomitant]
     Route: 048
     Dates: start: 20090513
  9. HIRUDOID [Concomitant]
     Dosage: OINTMENT AND CREAM. NOTE PROPER QUANTITY
     Route: 061
     Dates: start: 20090512, end: 20090624
  10. MAGMITT [Concomitant]
     Route: 048
  11. ASPIRIN [Concomitant]
     Dosage: FORM: ENTERIC
     Route: 048
     Dates: start: 20090513
  12. PRAVASTATIN SODIUM [Concomitant]
     Route: 048
     Dates: start: 20090513
  13. PYRIDOXINIUM CHLORIDE [Concomitant]
     Dosage: DRUG: ADEROXIN
     Route: 048
     Dates: start: 20090512, end: 20090624
  14. CAPECITABINE [Suspect]
     Indication: BREAST CANCER METASTATIC
     Dosage: 2 WEEKS ADMINISTRATION FOLLOWED BY 1 WEEK REST
     Route: 048
     Dates: start: 20090512, end: 20090526
  15. NOVOLIN 70/30 [Concomitant]
     Dosage: DOSE: 17 IU 1 PER 1 DAY, NOTE: 6.5.6.0 UNITS
     Route: 058
  16. NOVOLIN 70/30 [Concomitant]
     Dosage: DOSE: 6 IU1 PER 1 DAY, NOTE: 0.0.0.6 UNITS
     Route: 058
  17. AMOBAN [Concomitant]
     Route: 048

REACTIONS (11)
  - NEUROPATHY PERIPHERAL [None]
  - CYSTITIS [None]
  - PYREXIA [None]
  - OSTEOMYELITIS [None]
  - FEBRILE NEUTROPENIA [None]
  - PERIPHERAL SENSORY NEUROPATHY [None]
  - DISEASE PROGRESSION [None]
  - HYPOALBUMINAEMIA [None]
  - HAEMOGLOBIN DECREASED [None]
  - CELLULITIS [None]
  - IRON DEFICIENCY ANAEMIA [None]
